FAERS Safety Report 20407463 (Version 1)
Quarter: 2022Q1

REPORT INFORMATION
  Report Type: Spontaneous
  Country: NL (occurrence: NL)
  Receive Date: 20220131
  Receipt Date: 20220131
  Transmission Date: 20220423
  Serious: Yes (Hospitalization)
  Sender: FDA-Public Use
  Company Number: None

PATIENT
  Age: 45 Year
  Sex: Female
  Weight: 83 kg

DRUGS (3)
  1. PREGABALIN [Suspect]
     Active Substance: PREGABALIN
     Indication: Neuralgia
     Dosage: FREQ:12 H;2X 75 MG PER DAG
     Dates: start: 20211230
  2. PREGABALIN [Suspect]
     Active Substance: PREGABALIN
     Indication: Hernia
  3. BISOPROLOL/PERINDOPRIL ARGININE [Concomitant]
     Dosage: UNK

REACTIONS (3)
  - Pain [Not Recovered/Not Resolved]
  - Restless legs syndrome [Not Recovered/Not Resolved]
  - Paradoxical drug reaction [Not Recovered/Not Resolved]

NARRATIVE: CASE EVENT DATE: 20220106
